FAERS Safety Report 20775386 (Version 1)
Quarter: 2022Q2

REPORT INFORMATION
  Report Type: Spontaneous
  Country: AU (occurrence: AU)
  Receive Date: 20220502
  Receipt Date: 20220502
  Transmission Date: 20220721
  Serious: Yes (Hospitalization, Other)
  Sender: FDA-Public Use
  Company Number: AU-JNJFOC-20220448796

PATIENT
  Age: 72 Year
  Sex: Male

DRUGS (15)
  1. FLUCONAZOLE [Suspect]
     Active Substance: FLUCONAZOLE
     Dosage: 200 MG, DAILY
     Route: 065
  2. DEXAMETHASONE SODIUM PHOSPHATE [Suspect]
     Active Substance: DEXAMETHASONE SODIUM PHOSPHATE
     Dosage: UNK
     Route: 065
  3. ESOMEPRAZOLE [Suspect]
     Active Substance: ESOMEPRAZOLE
     Dosage: 40 MG, EVERY 1 DAY (EVERY MORNING)
     Route: 048
  4. BUDESONIDE [Suspect]
     Active Substance: BUDESONIDE
     Dosage: ROUTE OF ADMINISTRATION: INHALATION
     Route: 050
  5. ASPIRIN [Suspect]
     Active Substance: ASPIRIN
     Dosage: 100 MG, EVERY 1 DAY (EVERY MORNING)
     Route: 065
  6. BACTRIM [Suspect]
     Active Substance: SULFAMETHOXAZOLE\TRIMETHOPRIM
     Dosage: 2 TABLES TWICE A WEEK
     Route: 065
  7. BENRALIZUMAB [Suspect]
     Active Substance: BENRALIZUMAB
     Indication: Asthma
     Dosage: 30 MG, MONTHLY
     Route: 058
     Dates: start: 20180112
  8. CARFILZOMIB [Suspect]
     Active Substance: CARFILZOMIB
     Dosage: UNK
     Route: 065
  9. CICLESONIDE [Suspect]
     Active Substance: CICLESONIDE
     Dosage: ROUTE OF ADMINISTRATION: INHALATION, (CICLESONIDE) (160) TWO PUFFS MANE +/- 2 PUFFS NOCTE
     Route: 050
  10. ISOSORBIDE MONONITRATE [Suspect]
     Active Substance: ISOSORBIDE MONONITRATE
     Dosage: UNK
     Route: 065
  11. INDACATEROL MALEATE [Suspect]
     Active Substance: INDACATEROL MALEATE
     Dosage: (150-300) ONE PUFF MANE
     Route: 065
  12. IRBESARTAN [Suspect]
     Active Substance: IRBESARTAN
     Dosage: 75 MG, DAILY
     Route: 065
  13. ROSUVASTATIN [Suspect]
     Active Substance: ROSUVASTATIN
     Dosage: 20 MG, EVERY 1 DAY (AT NIGHT)
     Route: 048
  14. THEOPHYLLINE [Suspect]
     Active Substance: THEOPHYLLINE
     Dosage: 300 MG, EVERY 1 DAY (EVERY MORNING)
     Route: 065
  15. TIOTROPIUM [Suspect]
     Active Substance: TIOTROPIUM
     Dosage: (2.5) TWO PUFFS
     Route: 065

REACTIONS (3)
  - Influenza [Recovered/Resolved]
  - Pseudomonas infection [Unknown]
  - Rhinovirus infection [Unknown]

NARRATIVE: CASE EVENT DATE: 20190101
